FAERS Safety Report 18572324 (Version 1)
Quarter: 2020Q4

REPORT INFORMATION
  Report Type: Spontaneous
  Country: US (occurrence: US)
  Receive Date: 20201202
  Receipt Date: 20201202
  Transmission Date: 20210114
  Serious: No
  Sender: FDA-Public Use
  Company Number: US-BIOMARINAP-US-2020-133142

PATIENT
  Age: 5 Year
  Sex: Female
  Weight: 22.68 kg

DRUGS (1)
  1. KUVAN [Suspect]
     Active Substance: SAPROPTERIN DIHYDROCHLORIDE
     Indication: PHENYLKETONURIA
     Dosage: 500 MILLIGRAM, QD
     Route: 048

REACTIONS (4)
  - Mood altered [Unknown]
  - Abnormal behaviour [Unknown]
  - Product dose omission issue [Unknown]
  - Amino acid level increased [Unknown]
